FAERS Safety Report 18510497 (Version 1)
Quarter: 2020Q4

REPORT INFORMATION
  Report Type: Spontaneous
  Country: US (occurrence: US)
  Receive Date: 20201116
  Receipt Date: 20201116
  Transmission Date: 20210114
  Serious: No
  Sender: FDA-Public Use
  Company Number: None

PATIENT
  Age: 86 Year
  Sex: Male
  Weight: 99 kg

DRUGS (16)
  1. ABIRATERONE ACETATE. [Suspect]
     Active Substance: ABIRATERONE ACETATE
     Indication: PROSTATE CANCER
     Route: 048
     Dates: start: 20200715, end: 20201116
  2. ASPIRIN EC LOW DOSE [Concomitant]
  3. TAMOXIFEN CITRATE. [Concomitant]
     Active Substance: TAMOXIFEN CITRATE
  4. ESTRADIOL. [Concomitant]
     Active Substance: ESTRADIOL
  5. VITAMIN D3 [Concomitant]
     Active Substance: CHOLECALCIFEROL
  6. NIZORAL [Concomitant]
     Active Substance: KETOCONAZOLE
  7. PREDNISONE. [Concomitant]
     Active Substance: PREDNISONE
  8. METFORMIN HCL [Concomitant]
     Active Substance: METFORMIN HYDROCHLORIDE
  9. DIPHENHYDRAMINE HCL [Concomitant]
     Active Substance: DIPHENHYDRAMINE HYDROCHLORIDE
  10. BIOTIN MAXIMUM STRENGTH [Concomitant]
  11. LIVALO [Concomitant]
     Active Substance: PITAVASTATIN CALCIUM
  12. AVODART [Concomitant]
     Active Substance: DUTASTERIDE
  13. LIDODERM [Concomitant]
     Active Substance: LIDOCAINE
  14. VITAMIN B-12 ER [Concomitant]
  15. MAGNESIUM [Concomitant]
     Active Substance: MAGNESIUM
  16. RESVERATROL [Concomitant]
     Active Substance: DIETARY SUPPLEMENT\RESVERATROL

REACTIONS (1)
  - Disease progression [None]

NARRATIVE: CASE EVENT DATE: 20201116
